FAERS Safety Report 14340018 (Version 1)
Quarter: 2017Q4

REPORT INFORMATION
  Report Type: Report from Study
  Country: DE (occurrence: DE)
  Receive Date: 20171231
  Receipt Date: 20171231
  Transmission Date: 20180321
  Serious: Yes (Hospitalization, Other)
  Sender: FDA-Public Use
  Company Number: DE-TEVA-2017-DE-837044

PATIENT
  Age: 74 Year
  Sex: Male
  Weight: 83 kg

DRUGS (7)
  1. ABIRATERONE ACETATE. [Suspect]
     Active Substance: ABIRATERONE ACETATE
     Indication: PROSTATE CANCER METASTATIC
     Route: 048
     Dates: start: 20140716, end: 20140818
  2. CONCOR [Concomitant]
     Active Substance: BISOPROLOL FUMARATE
     Indication: HYPERTENSION
     Dosage: DOSAGE FORM: UNSPECIFIED
     Route: 065
  3. CANDESARTAN. [Concomitant]
     Active Substance: CANDESARTAN
     Indication: HYPERTENSION
     Dosage: DOSAGE FORM: UNSPECIFIED
     Route: 065
  4. PREDNISOLONE. [Suspect]
     Active Substance: PREDNISOLONE
     Indication: PROSTATE CANCER METASTATIC
     Dosage: DOSAGE FORM: UNSPECIFIED
     Route: 065
     Dates: start: 20140716, end: 20140818
  5. AMLODIPINE [Concomitant]
     Active Substance: AMLODIPINE BESYLATE
     Indication: HYPERTENSION
     Dosage: DOSAGE FORM: UNSPECIFIED
     Route: 065
  6. CALCIUM VITAMIN D [Concomitant]
     Active Substance: CALCIUM\VITAMIN D
     Indication: METASTASES TO BONE
     Dosage: DOSAGE FORM: UNSPECIFIED
     Route: 065
  7. DENOSUMAB [Concomitant]
     Active Substance: DENOSUMAB
     Indication: METASTASES TO BONE
     Dosage: DOSAGE FORM: UNSPECIFIED, IN REGULAR INTERVALS (EG MONTHLY)
     Route: 065

REACTIONS (1)
  - Transaminases increased [Recovered/Resolved with Sequelae]

NARRATIVE: CASE EVENT DATE: 20140814
